FAERS Safety Report 19593645 (Version 2)
Quarter: 2021Q3

REPORT INFORMATION
  Report Type: Spontaneous
  Country: IN (occurrence: IN)
  Receive Date: 20210722
  Receipt Date: 20210923
  Transmission Date: 20211014
  Serious: Yes (Other)
  Sender: FDA-Public Use
  Company Number: IN-PFIZER INC-2021871290

PATIENT
  Age: 21 Year
  Sex: Male

DRUGS (2)
  1. METHOTREXATE SODIUM. [Suspect]
     Active Substance: METHOTREXATE SODIUM
     Indication: PSORIASIS
     Dosage: 15 MG, WEEKLY (TAKEN ONE DAY OF THE WEEK)
  2. VALPROIC ACID. [Interacting]
     Active Substance: VALPROIC ACID
     Indication: JUVENILE ABSENCE EPILEPSY
     Dosage: 600 MG, 1X/DAY

REACTIONS (4)
  - Drug interaction [Recovered/Resolved]
  - Anticonvulsant drug level below therapeutic [Recovered/Resolved]
  - Neurotoxicity [Recovered/Resolved]
  - Seizure [Recovered/Resolved]
